FAERS Safety Report 24432709 (Version 1)
Quarter: 2024Q4

REPORT INFORMATION
  Report Type: Spontaneous
  Country: AT (occurrence: AT)
  Receive Date: 20241014
  Receipt Date: 20241014
  Transmission Date: 20250114
  Serious: Yes (Other)
  Sender: MYLAN
  Company Number: None

PATIENT
  Age: 62 Year
  Sex: Female

DRUGS (2)
  1. ATORVASTATIN [Interacting]
     Active Substance: ATORVASTATIN
     Indication: Product used for unknown indication
     Dosage: 10 MILLIGRAM
     Route: 065
  2. LEQVIO [Interacting]
     Active Substance: INCLISIRAN SODIUM
     Indication: Lipoprotein (a) increased
     Dosage: 1 DOSAGE FORM, TOTAL (1ST INJECTION)
     Route: 065
     Dates: start: 20240510

REACTIONS (7)
  - Back pain [Recovering/Resolving]
  - Adverse reaction [Recovering/Resolving]
  - Impaired healing [Recovering/Resolving]
  - Inflammation [Recovering/Resolving]
  - Uterine haemorrhage [Recovering/Resolving]
  - Dizziness [Recovering/Resolving]
  - Drug interaction [Unknown]

NARRATIVE: CASE EVENT DATE: 20240907
